FAERS Safety Report 8387922-4 (Version None)
Quarter: 2012Q2

REPORT INFORMATION
  Report Type: 
  Country: None (occurrence: None)
  Receive Date: 20120525
  Receipt Date: 20120518
  Transmission Date: 20120825
  Serious: Yes (Hospitalization, Disabling)
  Sender: FDA-Public Use
  Company Number: US-MERCK-1112USA00794

PATIENT
  Age: 60 Year
  Sex: Female
  Weight: 58 kg

DRUGS (11)
  1. FOSAMAX PLUS D [Suspect]
     Indication: OSTEOPOROSIS
     Route: 048
  2. FOSAMAX [Suspect]
     Route: 048
     Dates: start: 20030609, end: 20090512
  3. FOSAMAX [Suspect]
     Route: 048
     Dates: start: 20030609, end: 20090512
  4. FOSAMAX [Suspect]
     Route: 048
     Dates: end: 20080101
  5. CALCIUM CARBONATE [Concomitant]
     Route: 065
  6. ALENDRONATE SODIUM [Suspect]
     Indication: OSTEOPOROSIS
     Route: 065
     Dates: end: 20080101
  7. ALENDRONATE SODIUM [Suspect]
     Indication: OSTEOPOROSIS PROPHYLAXIS
     Route: 065
     Dates: end: 20080101
  8. FOSAMAX [Suspect]
     Indication: OSTEOPOROSIS
     Route: 048
     Dates: start: 19960417, end: 20030609
  9. FOSAMAX PLUS D [Suspect]
     Indication: OSTEOPOROSIS PROPHYLAXIS
     Route: 048
  10. FOSAMAX [Suspect]
     Indication: OSTEOPOROSIS PROPHYLAXIS
     Route: 048
     Dates: start: 19960417, end: 20030609
  11. FOSAMAX [Suspect]
     Route: 048
     Dates: end: 20080101

REACTIONS (18)
  - LOW TURNOVER OSTEOPATHY [None]
  - HYPERTENSION [None]
  - SKIN MASS [None]
  - SINUS DISORDER [None]
  - BONE ABSCESS [None]
  - OSTEOARTHRITIS [None]
  - CHANGE OF BOWEL HABIT [None]
  - HAEMORRHOIDS [None]
  - OSTEOMYELITIS [None]
  - OSTEOMALACIA [None]
  - DIVERTICULUM [None]
  - FEMUR FRACTURE [None]
  - BONE CYST [None]
  - CATARACT [None]
  - INSOMNIA [None]
  - MASTOCYTOSIS [None]
  - JOINT INJURY [None]
  - OSTEITIS DEFORMANS [None]
